FAERS Safety Report 21043567 (Version 1)
Quarter: 2022Q3

REPORT INFORMATION
  Report Type: Spontaneous
  Country: US (occurrence: None)
  Receive Date: 20220701
  Receipt Date: 20220701
  Transmission Date: 20221027
  Serious: Yes (Other)
  Sender: FDA-Public Use
  Company Number: None

PATIENT
  Age: 44 Year
  Sex: Female
  Weight: 54 kg

DRUGS (8)
  1. NALTREXONE [Suspect]
     Active Substance: NALTREXONE
     Indication: Addison^s disease
     Dosage: FREQUENCY : AT BEDTIME;?
     Route: 048
  2. Glucocosteriods [Concomitant]
  3. SYNTHROID [Concomitant]
     Active Substance: LEVOTHYROXINE SODIUM
  4. LIOTHYRONINE [Concomitant]
     Active Substance: LIOTHYRONINE
  5. GLYCINE [Concomitant]
     Active Substance: GLYCINE
  6. DIETARY SUPPLEMENT [Concomitant]
     Active Substance: DIETARY SUPPLEMENT
  7. DHA/EPA [Concomitant]
  8. Vitamin 6 [Concomitant]

REACTIONS (6)
  - Pain [None]
  - Scab [None]
  - Blister [None]
  - Wound [None]
  - Injury [None]
  - Internal injury [None]

NARRATIVE: CASE EVENT DATE: 20220701
